FAERS Safety Report 10625208 (Version 2)
Quarter: 2014Q4

REPORT INFORMATION
  Report Type: Report from Study
  Country: AU (occurrence: AU)
  Receive Date: 20141204
  Receipt Date: 20141212
  Transmission Date: 20150529
  Serious: Yes (Hospitalization, Other)
  Sender: FDA-Public Use
  Company Number: PHHY2014AU153834

PATIENT
  Age: 73 Year
  Sex: Female

DRUGS (1)
  1. SANDOSTATIN LAR DEPOT [Suspect]
     Active Substance: OCTREOTIDE ACETATE
     Indication: CARCINOID SYNDROME
     Dosage: 30 MG, EVERY 4 WEEKS
     Route: 030
     Dates: start: 201309

REACTIONS (2)
  - Nightmare [Recovered/Resolved]
  - Breast abscess [Recovered/Resolved]

NARRATIVE: CASE EVENT DATE: 20141031
